FAERS Safety Report 14942345 (Version 1)
Quarter: 2018Q2

REPORT INFORMATION
  Report Type: Spontaneous
  Country: IT (occurrence: IT)
  Receive Date: 20180528
  Receipt Date: 20180528
  Transmission Date: 20180711
  Serious: Yes (Other)
  Sender: FDA-Public Use
  Company Number: IT-TEVA-2018-IT-895354

PATIENT
  Age: 81 Year
  Sex: Female

DRUGS (6)
  1. FERRO-GRAD [Concomitant]
     Active Substance: FERROUS SULFATE
  2. ZYPREXA [Concomitant]
     Active Substance: OLANZAPINE
  3. METFORMIN [Suspect]
     Active Substance: METFORMIN HYDROCHLORIDE
     Indication: DIABETES MELLITUS
     Dosage: 3 DOSAGE FORMS DAILY;
     Route: 048
     Dates: start: 20170101, end: 20171128
  4. KCL-RETARD 600 MG COMPRESSE A RILASCIO PROLUNGATO [Concomitant]
  5. TRIATEC [Concomitant]
  6. LANOXIN [Concomitant]
     Active Substance: DIGOXIN

REACTIONS (2)
  - Sopor [Recovering/Resolving]
  - Hypoglycaemia [Recovering/Resolving]

NARRATIVE: CASE EVENT DATE: 20171128
